FAERS Safety Report 8555758-7 (Version None)
Quarter: 2012Q3

REPORT INFORMATION
  Report Type: 
  Country: None (occurrence: None)
  Receive Date: 20120801
  Receipt Date: 20120723
  Transmission Date: 20120928
  Serious: Yes (Other)
  Sender: FDA-Public Use
  Company Number: US-009507513-1207USA012096

PATIENT

DRUGS (4)
  1. ZOCOR [Suspect]
     Route: 048
  2. GLICLAZIDE [Suspect]
     Dosage: 80 MG, BID
  3. VICTOZA [Suspect]
  4. METFORMIN HYDROCHLORIDE [Suspect]
     Dosage: 850 MG, TID

REACTIONS (4)
  - PANCREATIC CARCINOMA [None]
  - JAUNDICE [None]
  - LIVER FUNCTION TEST ABNORMAL [None]
  - ABDOMINAL PAIN UPPER [None]
